FAERS Safety Report 5121712-0 (Version None)
Quarter: 2006Q4

REPORT INFORMATION
  Report Type: 
  Country: None (occurrence: None)
  Receive Date: 20061006
  Receipt Date: 20060925
  Transmission Date: 20070319
  Serious: Yes (Hospitalization)
  Sender: FDA-Public Use
  Company Number: FR-AVENTIS-200613325FR

PATIENT
  Age: 61 Year
  Sex: Female
  Weight: 47 kg

DRUGS (6)
  1. TARGOCID [Suspect]
     Indication: OSTEITIS
     Route: 042
     Dates: start: 20060704, end: 20060715
  2. RIFADIN [Suspect]
     Indication: OSTEITIS
     Route: 048
     Dates: start: 20060710, end: 20060719
  3. NETROMYCIN [Concomitant]
     Indication: DRUG USE FOR UNKNOWN INDICATION
     Route: 042
     Dates: start: 20060704, end: 20060705
  4. VASTAREL [Concomitant]
     Indication: DRUG USE FOR UNKNOWN INDICATION
     Route: 048
  5. ASPIRIN [Concomitant]
     Indication: DRUG USE FOR UNKNOWN INDICATION
     Route: 048
  6. PERINDOPRIL ERBUMINE [Concomitant]
     Indication: ESSENTIAL HYPERTENSION
     Route: 048

REACTIONS (2)
  - LYMPHOPENIA [None]
  - NEUTROPENIA [None]
